FAERS Safety Report 6804807-2 (Version None)
Quarter: 2010Q2

REPORT INFORMATION
  Report Type: 
  Country: None (occurrence: None)
  Receive Date: 20100628
  Receipt Date: 20100628
  Transmission Date: 20101027
  Serious: No
  Sender: FDA-Public Use
  Company Number: None

PATIENT
  Age: 58 Year
  Sex: Female

DRUGS (1)
  1. LAC-HYDRIN [Suspect]
     Indication: DRY SKIN
     Dosage: APPLY AFFECTED AREA AS DIRECTED TOPICAL
     Route: 061
     Dates: start: 20090407, end: 20091102

REACTIONS (1)
  - FINGERPRINT LOSS [None]
